FAERS Safety Report 15705012 (Version 1)
Quarter: 2018Q4

REPORT INFORMATION
  Report Type: Spontaneous
  Country: US (occurrence: US)
  Receive Date: 20181210
  Receipt Date: 20181210
  Transmission Date: 20190205
  Serious: No
  Sender: FDA-Public Use
  Company Number: US-SA-2018SA332453

PATIENT
  Sex: Male

DRUGS (12)
  1. HUMULIN R [Concomitant]
     Active Substance: INSULIN HUMAN
  2. NOVOLOG [Concomitant]
     Active Substance: INSULIN ASPART
  3. PRALUENT [Suspect]
     Active Substance: ALIROCUMAB
     Indication: HYPERLIPIDAEMIA
     Route: 058
  4. ISOSORB MONO [Concomitant]
     Active Substance: ISOSORBIDE MONONITRATE
  5. CARTIA XT [Concomitant]
     Active Substance: DILTIAZEM HYDROCHLORIDE
  6. CHLORTHALIDON [Concomitant]
  7. FENOFIBRATE. [Concomitant]
     Active Substance: FENOFIBRATE
  8. ATENOLOL. [Concomitant]
     Active Substance: ATENOLOL
  9. METFORMIN [Concomitant]
     Active Substance: METFORMIN HYDROCHLORIDE
  10. NITROSTAT [Concomitant]
     Active Substance: NITROGLYCERIN
  11. CLINDAMYCIN. [Concomitant]
     Active Substance: CLINDAMYCIN
  12. CLOPIDOGREL [Concomitant]
     Active Substance: CLOPIDOGREL BISULFATE

REACTIONS (1)
  - Drug ineffective [Unknown]
